FAERS Safety Report 6534977-5 (Version None)
Quarter: 2010Q1

REPORT INFORMATION
  Report Type: 
  Country: None (occurrence: None)
  Receive Date: 20100111
  Receipt Date: 20100111
  Transmission Date: 20100710
  Serious: Yes (Death, Hospitalization, Other)
  Sender: FDA-Public Use
  Company Number: None

PATIENT
  Age: 60 Year
  Sex: Male

DRUGS (1)
  1. PEG-INTERFERON [Suspect]
     Dates: start: 20090501, end: 20090902

REACTIONS (6)
  - ANAEMIA [None]
  - CARDIAC ARREST [None]
  - LOBAR PNEUMONIA [None]
  - NEUTROPENIA [None]
  - RESPIRATORY FAILURE [None]
  - THROMBOCYTOPENIA [None]
